FAERS Safety Report 7605562-9 (Version None)
Quarter: 2011Q3

REPORT INFORMATION
  Report Type: 
  Country: None (occurrence: None)
  Receive Date: 20110713
  Receipt Date: 20110630
  Transmission Date: 20111222
  Serious: Yes (Other)
  Sender: FDA-Public Use
  Company Number: US-BAYER-2011-015285

PATIENT
  Age: 27 Year
  Sex: Female
  Weight: 87.075 kg

DRUGS (16)
  1. DROSPIRENONE AND ETHINYL ESTRADIOL [Suspect]
     Route: 048
  2. IBUPROFEN [Concomitant]
     Dosage: 800 MG, UNK
     Dates: start: 20080206, end: 20081231
  3. FERROUS SULFATE TAB [Concomitant]
     Dosage: 325 MG, UNK
     Dates: start: 20080206
  4. AZITHROMYCIN [Concomitant]
     Dosage: UNK
     Dates: start: 20081206
  5. PEPCID [Concomitant]
     Dosage: 20 MG, UNK
     Route: 042
     Dates: start: 20090831
  6. METRONIDAZOLE [Concomitant]
     Dosage: UNK
     Dates: start: 20090226, end: 20090430
  7. YASMIN [Suspect]
     Dosage: UNK
     Route: 048
     Dates: start: 20080101, end: 20090101
  8. HYDROCODONE [Concomitant]
     Dosage: UNK
     Dates: start: 20090904
  9. FLUVIRIN [Concomitant]
     Dosage: UNK
     Dates: start: 20090918
  10. DOXICICLINA [DOXYCYCLINE HYDROCHLORIDE] [Concomitant]
     Dosage: UNK
     Dates: start: 20080226
  11. NEXIUM [Concomitant]
     Dosage: 40 MG, UNK
     Dates: start: 20090628
  12. PRENATAL [Concomitant]
     Dosage: UNK
     Dates: start: 20070702, end: 20080119
  13. FLUCONAZOLE [Concomitant]
     Dosage: UNK
     Dates: start: 20081230, end: 20090210
  14. YAZ [Suspect]
     Indication: PRODUCT USED FOR UNKNOWN INDICATION
     Dosage: UNK
     Route: 048
     Dates: start: 20080101, end: 20090101
  15. PENICILLIN [Concomitant]
     Dosage: UNK
     Dates: start: 20081231
  16. MORPHINE [Concomitant]
     Dosage: 2 MG, UNK
     Dates: start: 20090628

REACTIONS (7)
  - GALLBLADDER DISORDER [None]
  - INJURY [None]
  - DISCOMFORT [None]
  - PAIN [None]
  - CHOLECYSTITIS CHRONIC [None]
  - CHOLELITHIASIS [None]
  - WEIGHT INCREASED [None]
